FAERS Safety Report 19520240 (Version 3)
Quarter: 2021Q3

REPORT INFORMATION
  Report Type: Spontaneous
  Country: JP (occurrence: JP)
  Receive Date: 20210712
  Receipt Date: 20210830
  Transmission Date: 20211014
  Serious: Yes (Death)
  Sender: FDA-Public Use
  Company Number: JP-JNJFOC-20210722737

PATIENT
  Age: 93 Year
  Sex: Male

DRUGS (6)
  1. BETAMETHASONE. [Concomitant]
     Active Substance: BETAMETHASONE
     Dosage: DOSE UNKNOWN
     Route: 061
     Dates: start: 20210413
  2. ERLEADA [Suspect]
     Active Substance: APALUTAMIDE
     Indication: PROSTATE CANCER
     Route: 048
     Dates: start: 20201005, end: 20210628
  3. OLOPATADINE HYDROCHLORIDE. [Concomitant]
     Active Substance: OLOPATADINE HYDROCHLORIDE
     Dosage: DOSE UNKNOWN
     Route: 048
     Dates: start: 20210427
  4. SULPIRIDE [Concomitant]
     Active Substance: SULPIRIDE
     Dosage: DOSE UNKNOWN
     Route: 048
     Dates: start: 20210618
  5. LEUPLIN [Concomitant]
     Active Substance: LEUPROLIDE ACETATE
     Dosage: DOSE UNKNOWN
     Route: 058
     Dates: start: 20210602
  6. DIART [Concomitant]
     Dosage: DOSE UNKNOWN
     Route: 048
     Dates: start: 20210618

REACTIONS (2)
  - Marasmus [Fatal]
  - Pneumonia aspiration [Fatal]

NARRATIVE: CASE EVENT DATE: 20210628
